APPROVED DRUG PRODUCT: GANTANOL
Active Ingredient: SULFAMETHOXAZOLE
Strength: 500MG
Dosage Form/Route: TABLET;ORAL
Application: N012715 | Product #002
Applicant: HOFFMANN LA ROCHE INC
Approved: Approved Prior to Jan 1, 1982 | RLD: No | RS: No | Type: DISCN